FAERS Safety Report 5083270-9 (Version None)
Quarter: 2006Q3

REPORT INFORMATION
  Report Type: 
  Country: None (occurrence: None)
  Receive Date: 20060818
  Receipt Date: 20060818
  Transmission Date: 20061208
  Serious: Yes (Life-Threatening, Hospitalization)
  Sender: FDA-Public Use
  Company Number: None

PATIENT
  Age: 78 Year
  Sex: Male
  Weight: 53.978 kg

DRUGS (8)
  1. WARFARIN SODIUM [Suspect]
     Indication: DEEP VEIN THROMBOSIS
     Dosage: 12MG DAILY PO
     Route: 048
     Dates: start: 20060519, end: 20060807
  2. WARFARIN SODIUM [Suspect]
     Indication: PULMONARY EMBOLISM
     Dosage: 12MG DAILY PO
     Route: 048
     Dates: start: 20060519, end: 20060807
  3. ISONIAZID [Concomitant]
  4. PYRIDOXINE HCL [Concomitant]
  5. MEGESTEROL [Concomitant]
  6. RIFAMPIN [Concomitant]
  7. ETHAMBUTOL HYDROCHLORIDE [Concomitant]
  8. LEVOTHYROXINE SODIUM [Concomitant]

REACTIONS (4)
  - CEREBROVASCULAR ACCIDENT [None]
  - DRUG TOXICITY [None]
  - FALL [None]
  - INTERNATIONAL NORMALISED RATIO INCREASED [None]
